FAERS Safety Report 15741730 (Version 3)
Quarter: 2019Q2

REPORT INFORMATION
  Report Type: Report from Study
  Country: US (occurrence: US)
  Receive Date: 20181219
  Receipt Date: 20190614
  Transmission Date: 20190711
  Serious: Yes (Hospitalization, Other)
  Sender: FDA-Public Use
  Company Number: US-ACTELION-A-US2018-183490

PATIENT
  Age: 57 Year
  Sex: Female

DRUGS (15)
  1. METFORMIN [Concomitant]
     Active Substance: METFORMIN HYDROCHLORIDE
  2. OPSUMIT [Suspect]
     Active Substance: MACITENTAN
     Indication: PULMONARY ARTERIAL HYPERTENSION
     Dosage: 10 MG, QD
     Route: 048
     Dates: start: 20180503
  3. DIGOXIN. [Concomitant]
     Active Substance: DIGOXIN
  4. SINGULAIR [Concomitant]
     Active Substance: MONTELUKAST SODIUM
  5. VALSARTAN. [Concomitant]
     Active Substance: VALSARTAN
  6. RESTASIS [Concomitant]
     Active Substance: CYCLOSPORINE
  7. ALPRAZOLAM. [Concomitant]
     Active Substance: ALPRAZOLAM
  8. PROAIR HFA [Concomitant]
     Active Substance: ALBUTEROL SULFATE
  9. LUMIGAN [Concomitant]
     Active Substance: BIMATOPROST
  10. SILDENAFIL. [Concomitant]
     Active Substance: SILDENAFIL
     Dosage: 20 MG, UNK
  11. LORAZEPAM. [Concomitant]
     Active Substance: LORAZEPAM
  12. VITAMIN D [Concomitant]
     Active Substance: VITAMIN D NOS
  13. ACTIGALL [Concomitant]
     Active Substance: URSODIOL
  14. FUROSEMIDE. [Concomitant]
     Active Substance: FUROSEMIDE
  15. SPIRONOLACTONE. [Concomitant]
     Active Substance: SPIRONOLACTONE

REACTIONS (6)
  - Diagnostic procedure [Unknown]
  - Rectal haemorrhage [Not Recovered/Not Resolved]
  - Acute kidney injury [Unknown]
  - Primary biliary cholangitis [Not Recovered/Not Resolved]
  - Psoriasis [Unknown]
  - Gastrointestinal haemorrhage [Not Recovered/Not Resolved]

NARRATIVE: CASE EVENT DATE: 201812
